FAERS Safety Report 9876692 (Version 2)
Quarter: 2014Q1

REPORT INFORMATION
  Report Type: Other
  Country: US (occurrence: US)
  Receive Date: 20140206
  Receipt Date: 20140206
  Transmission Date: 20141002
  Serious: No
  Sender: FDA-Public Use
  Company Number: US-ACORDA-ACO_37175_2013

PATIENT
  Age: 42 Year
  Sex: Female
  Weight: 86.62 kg

DRUGS (6)
  1. AMPYRA [Suspect]
     Indication: GAIT DISTURBANCE
     Dosage: 10 MG, BID
     Route: 048
     Dates: start: 201305, end: 201306
  2. PAROXETINE [Concomitant]
     Indication: DEPRESSION
     Dosage: 20 MG, QD
     Route: 048
     Dates: start: 2010
  3. IBUPROFEN [Concomitant]
     Indication: PAIN
     Dosage: 800 MG, BID
     Route: 048
  4. MULTIVITAMIN [Concomitant]
     Indication: PRODUCT USED FOR UNKNOWN INDICATION
     Dosage: 1 TABLET, QD
     Route: 048
  5. TYLENOL [Concomitant]
     Indication: PAIN
     Dosage: 1000 MG, PRN
     Route: 048
  6. REBIF [Concomitant]
     Indication: MULTIPLE SCLEROSIS
     Dosage: 44 ?G, 3 TIMES WEEKLY
     Route: 058
     Dates: start: 2013

REACTIONS (1)
  - Feeling abnormal [Not Recovered/Not Resolved]
